FAERS Safety Report 17395436 (Version 1)
Quarter: 2020Q1

REPORT INFORMATION
  Report Type: Spontaneous
  Country: NO (occurrence: NO)
  Receive Date: 20200210
  Receipt Date: 20200210
  Transmission Date: 20200409
  Serious: Yes (Other)
  Sender: FDA-Public Use
  Company Number: NO-ROCHE-2538996

PATIENT
  Age: 56 Year
  Sex: Female
  Weight: 146 kg

DRUGS (2)
  1. HERCEPTIN [Suspect]
     Active Substance: TRASTUZUMAB
     Indication: HER-2 POSITIVE BREAST CANCER
     Route: 058
  2. HERCEPTIN [Suspect]
     Active Substance: TRASTUZUMAB
     Indication: HER-2 POSITIVE BREAST CANCER
     Dosage: 8 MG/KG STRENGTH; 1170 MG IN 250 ML NACL WITH ADMINISTRATION TIME 1.5 HOURS
     Route: 041
     Dates: start: 20191119

REACTIONS (3)
  - Pyrexia [Recovered/Resolved]
  - Dyspnoea [Recovering/Resolving]
  - Tremor [Recovered/Resolved]

NARRATIVE: CASE EVENT DATE: 20191119
